FAERS Safety Report 5823468-2 (Version None)
Quarter: 2008Q3

REPORT INFORMATION
  Report Type: 
  Country: None (occurrence: None)
  Receive Date: 20080725
  Receipt Date: 20080421
  Transmission Date: 20090109
  Serious: Yes (Other)
  Sender: FDA-Public Use
  Company Number: US-ABBOTT-08P-163-0445609-00

PATIENT
  Sex: Female

DRUGS (7)
  1. NORVIR [Suspect]
     Indication: HIV INFECTION
     Route: 048
     Dates: start: 20070516, end: 20071012
  2. NORVIR [Suspect]
     Route: 048
     Dates: end: 20071012
  3. APTIVUS [Suspect]
     Indication: HIV INFECTION
     Route: 048
     Dates: start: 20070516, end: 20071012
  4. APTIVUS [Suspect]
     Route: 048
     Dates: start: 20070516, end: 20071012
  5. ATRIPLA [Concomitant]
     Indication: HIV INFECTION
     Route: 048
     Dates: start: 20070516, end: 20071012
  6. AZITHROMYCIN [Concomitant]
     Indication: DRUG USE FOR UNKNOWN INDICATION
     Route: 048
     Dates: start: 20070516, end: 20071012
  7. BACTRIM [Concomitant]
     Indication: DRUG USE FOR UNKNOWN INDICATION
     Route: 048
     Dates: start: 20070516, end: 20071012

REACTIONS (4)
  - ANOREXIA [None]
  - FATIGUE [None]
  - HEPATIC ENZYME INCREASED [None]
  - MALAISE [None]
